FAERS Safety Report 20903541 (Version 6)
Quarter: 2023Q4

REPORT INFORMATION
  Report Type: Other
  Country: DE (occurrence: None)
  Receive Date: 20220602
  Receipt Date: 20231215
  Transmission Date: 20240109
  Serious: Yes (Hospitalization)
  Sender: FDA-Public Use
  Company Number: DE-ROCHE-3105821

PATIENT
  Age: 27 Year
  Sex: Female

DRUGS (11)
  1. OCREVUS [Suspect]
     Active Substance: OCRELIZUMAB
     Indication: Relapsing multiple sclerosis
     Route: 042
     Dates: start: 20200710, end: 20200724
  2. OCREVUS [Suspect]
     Active Substance: OCRELIZUMAB
     Route: 042
     Dates: start: 20210112
  3. DOXYCYCLINE [Concomitant]
     Active Substance: DOXYCYCLINE
     Indication: Infection
     Dates: start: 20230904, end: 20230906
  4. PREDNISOLONE [Concomitant]
     Active Substance: PREDNISOLONE
     Indication: Hypersensitivity
     Route: 042
     Dates: start: 20220501, end: 20220501
  5. PREDNISOLONE [Concomitant]
     Active Substance: PREDNISOLONE
     Route: 048
     Dates: start: 20220506, end: 20220507
  6. PREDNISOLONE [Concomitant]
     Active Substance: PREDNISOLONE
     Route: 048
     Dates: start: 20220502, end: 20220503
  7. PREDNISOLONE [Concomitant]
     Active Substance: PREDNISOLONE
     Route: 048
     Dates: start: 20220504, end: 20220505
  8. CHOLECALCIFEROL [Concomitant]
     Active Substance: CHOLECALCIFEROL
     Indication: Prophylaxis
     Route: 048
  9. PIPERACILLIN SODIUM\TAZOBACTAM SODIUM [Concomitant]
     Active Substance: PIPERACILLIN SODIUM\TAZOBACTAM SODIUM
     Indication: Infection
     Route: 042
     Dates: start: 20230907, end: 20230911
  10. AMPICILLIN SODIUM\SULBACTAM SODIUM [Concomitant]
     Active Substance: AMPICILLIN SODIUM\SULBACTAM SODIUM
     Indication: Infection
     Route: 042
     Dates: start: 20230904, end: 20230906
  11. DIMETHINDENE [Concomitant]
     Active Substance: DIMETHINDENE
     Indication: Hypersensitivity
     Route: 042
     Dates: start: 20220501, end: 20220501

REACTIONS (5)
  - Bacterial infection [Unknown]
  - Psoriasis [Not Recovered/Not Resolved]
  - Hypersensitivity [Recovered/Resolved]
  - COVID-19 [Recovering/Resolving]
  - Conjunctivitis [Recovered/Resolved]

NARRATIVE: CASE EVENT DATE: 20220215
